FAERS Safety Report 24169841 (Version 1)
Quarter: 2024Q3

REPORT INFORMATION
  Report Type: Spontaneous
  Country: CN (occurrence: CN)
  Receive Date: 20240803
  Receipt Date: 20240803
  Transmission Date: 20241017
  Serious: Yes (Other)
  Sender: BAXTER
  Company Number: None

PATIENT
  Age: 81 Year
  Sex: Female
  Weight: 55 kg

DRUGS (3)
  1. CYCLOPHOSPHAMIDE [Suspect]
     Active Substance: CYCLOPHOSPHAMIDE
     Indication: Lymphoma
     Dosage: 0.8 G ONE TIME IN ONE DAY, START TIME: AT 11:00
     Route: 041
     Dates: start: 20240704, end: 20240704
  2. EPIRUBICIN HYDROCHLORIDE [Suspect]
     Active Substance: EPIRUBICIN HYDROCHLORIDE
     Indication: Lymphoma
     Dosage: 80 MG, ONE TIME IN ONE DAY, START TIME: AT 11:00
     Route: 041
     Dates: start: 20240704, end: 20240704
  3. VINCRISTINE SULFATE [Suspect]
     Active Substance: VINCRISTINE SULFATE
     Indication: Lymphoma
     Dosage: 1 MG, ONE TIME IN ONE DAY, START TIME: AT 11:00
     Route: 041
     Dates: start: 20240704, end: 20240704

REACTIONS (3)
  - Discomfort [Recovering/Resolving]
  - Nausea [Recovered/Resolved]
  - Vomiting [Recovered/Resolved]

NARRATIVE: CASE EVENT DATE: 20240704
